FAERS Safety Report 4762823-9 (Version None)
Quarter: 2005Q3

REPORT INFORMATION
  Report Type: 
  Country: None (occurrence: None)
  Receive Date: 20050907
  Receipt Date: 20050826
  Transmission Date: 20060218
  Serious: Yes (Hospitalization)
  Sender: FDA-Public Use
  Company Number: US-BRISTOL-MYERS SQUIBB COMPANY-13091525

PATIENT
  Age: 47 Year
  Sex: Female
  Weight: 91 kg

DRUGS (6)
  1. COUMADIN [Suspect]
     Indication: CARDIAC DISORDER
     Dosage: ON 22-JUN-05, STOPPED FOR 15 DAYS; THEN RESTART ON 7.5MG X 5 DAYS + 5MG X 2 DAYS
     Route: 048
     Dates: start: 20031217
  2. COUMADIN [Suspect]
     Indication: ANTIPHOSPHOLIPID SYNDROME
     Dosage: ON 22-JUN-05, STOPPED FOR 15 DAYS; THEN RESTART ON 7.5MG X 5 DAYS + 5MG X 2 DAYS
     Route: 048
     Dates: start: 20031217
  3. PREVACID [Concomitant]
  4. RESTORIL [Concomitant]
  5. VALIUM [Concomitant]
  6. VALIUM [Concomitant]

REACTIONS (3)
  - ELECTROENCEPHALOGRAM ABNORMAL [None]
  - INTERNATIONAL NORMALISED RATIO INCREASED [None]
  - NUCLEAR MAGNETIC RESONANCE IMAGING ABNORMAL [None]
